FAERS Safety Report 4391940-0 (Version None)
Quarter: 2004Q3

REPORT INFORMATION
  Report Type: 
  Country: None (occurrence: None)
  Receive Date: 20040701
  Receipt Date: 20040611
  Transmission Date: 20050211
  Serious: Yes (Other)
  Sender: FDA-Public Use
  Company Number: USA040363316

PATIENT
  Age: 80 Year
  Sex: Male

DRUGS (7)
  1. CIALIS [Suspect]
     Indication: ERECTILE DYSFUNCTION
     Dosage: 20 MG
  2. ALLOPURINOL [Concomitant]
  3. NIFEDIPINE [Concomitant]
  4. PENTOXIFYLLINE [Concomitant]
  5. PREVACID [Concomitant]
  6. LORATADINE [Concomitant]
  7. LISINOPRIL [Concomitant]

REACTIONS (5)
  - HYDROCEPHALUS [None]
  - LOSS OF CONSCIOUSNESS [None]
  - LUNG NEOPLASM MALIGNANT [None]
  - METASTASES TO CENTRAL NERVOUS SYSTEM [None]
  - ROAD TRAFFIC ACCIDENT [None]
